FAERS Safety Report 16815033 (Version 1)
Quarter: 2019Q3

REPORT INFORMATION
  Report Type: Spontaneous
  Country: US (occurrence: US)
  Receive Date: 20190725
  Receipt Date: 20190725
  Transmission Date: 20191005
  Serious: Yes (Other)
  Sender: FDA-Public Use
  Company Number: None

PATIENT
  Age: 56 Year
  Sex: Female
  Weight: 72.57 kg

DRUGS (3)
  1. OLMESARTAN [Suspect]
     Active Substance: OLMESARTAN
     Indication: HYPERTENSION
  2. ARMOUR THYROID [Concomitant]
     Active Substance: THYROID, PORCINE
  3. NATURE MADE D3 [Concomitant]

REACTIONS (3)
  - Nervousness [None]
  - Dysphonia [None]
  - Memory impairment [None]

NARRATIVE: CASE EVENT DATE: 20190501
